FAERS Safety Report 9684841 (Version 1)
Quarter: 2013Q4

REPORT INFORMATION
  Report Type: Spontaneous
  Country: ES (occurrence: ES)
  Receive Date: 20131112
  Receipt Date: 20131112
  Transmission Date: 20140711
  Serious: Yes (Other)
  Sender: FDA-Public Use
  Company Number: ES-009507513-1311ESP002768

PATIENT
  Age: 41 Year
  Sex: Female
  Weight: 61 kg

DRUGS (2)
  1. BETAMETHASONE DIPROPIONATE\GENTAMICIN SULFATE [Suspect]
     Indication: SKIN BACTERIAL INFECTION
     Route: 061
     Dates: start: 20130918, end: 20130920
  2. CIPROFLOXACIN [Suspect]
     Indication: SKIN BACTERIAL INFECTION
     Dosage: 500 MG, BID
     Route: 048
     Dates: start: 20130918, end: 20130920

REACTIONS (4)
  - Chest pain [Recovering/Resolving]
  - Formication [Recovering/Resolving]
  - Pruritus [Recovering/Resolving]
  - Erythema [Recovering/Resolving]
